FAERS Safety Report 6829818-2 (Version None)
Quarter: 2010Q3

REPORT INFORMATION
  Report Type: 
  Country: None (occurrence: None)
  Receive Date: 20100706
  Receipt Date: 20100629
  Transmission Date: 20110219
  Serious: Yes (Other)
  Sender: FDA-Public Use
  Company Number: VANT20100061

PATIENT
  Sex: Male

DRUGS (1)
  1. VANTAS [Suspect]
     Indication: PROSTATE CANCER
     Dosage: 1 IN 1 Y, SUB Q. IMPLANT
     Dates: start: 20100623, end: 20100625

REACTIONS (4)
  - DEVICE EXPULSION [None]
  - IMPLANT SITE INFECTION [None]
  - PRODUCT QUALITY ISSUE [None]
  - TOOTH ABSCESS [None]
